FAERS Safety Report 5712435-5 (Version None)
Quarter: 2008Q2

REPORT INFORMATION
  Report Type: 
  Country: None (occurrence: None)
  Receive Date: 20080422
  Receipt Date: 20080411
  Transmission Date: 20081010
  Serious: Yes (Life-Threatening)
  Sender: FDA-Public Use
  Company Number: GB-JNJFOC-20080403707

PATIENT
  Age: 62 Year
  Sex: Female
  Weight: 69.5 kg

DRUGS (4)
  1. INFLIXIMAB [Suspect]
     Route: 042
  2. INFLIXIMAB [Suspect]
     Indication: RHEUMATOID ARTHRITIS
     Route: 042
  3. FOLIC ACID [Concomitant]
     Indication: PROPHYLAXIS
     Route: 048
  4. METHOTREXATE [Concomitant]
     Indication: RHEUMATOID ARTHRITIS
     Route: 048

REACTIONS (5)
  - ANXIETY [None]
  - CHEST DISCOMFORT [None]
  - FEELING HOT [None]
  - FLUSHING [None]
  - INFUSION RELATED REACTION [None]
